FAERS Safety Report 8295904-6 (Version None)
Quarter: 2012Q2

REPORT INFORMATION
  Report Type: 
  Country: None (occurrence: None)
  Receive Date: 20120418
  Receipt Date: 20120412
  Transmission Date: 20120825
  Serious: Yes (Other)
  Sender: FDA-Public Use
  Company Number: US-PFIZER INC-2012092385

PATIENT
  Sex: Female
  Weight: 83.9 kg

DRUGS (7)
  1. GABAPENTIN [Suspect]
     Indication: MIGRAINE
     Dosage: 24 MG, 2X/DAY
     Route: 048
     Dates: start: 20080901, end: 20080101
  2. GABAPENTIN [Suspect]
     Indication: FIBROMYALGIA
  3. SINGULAIR [Concomitant]
     Indication: ASTHMA
     Dosage: 10 MG, DAILY
  4. GABAPENTIN [Suspect]
  5. NEXIUM [Concomitant]
     Indication: DYSPEPSIA
     Dosage: 40 MG, DAILY
     Route: 048
  6. LEVOTHYROXINE SODIUM [Concomitant]
     Indication: THYROID DISORDER
     Dosage: 75 UG, DAILY
  7. GABAPENTIN [Suspect]
     Dosage: 24 MG, 2X/DAY
     Route: 048
     Dates: start: 20080101

REACTIONS (3)
  - PARALYSIS [None]
  - PAIN IN EXTREMITY [None]
  - MUSCULAR WEAKNESS [None]
